FAERS Safety Report 7835596-0 (Version None)
Quarter: 2011Q4

REPORT INFORMATION
  Report Type: 
  Country: None (occurrence: None)
  Receive Date: 20111024
  Receipt Date: 20110929
  Transmission Date: 20120403
  Serious: Yes (Hospitalization, Other)
  Sender: FDA-Public Use
  Company Number: PHHY2011BR87648

PATIENT
  Age: 45 Year
  Sex: Female
  Weight: 82 kg

DRUGS (8)
  1. PLAVIX [Concomitant]
  2. ISOSORBIDE MONONITRATE [Concomitant]
  3. CRESTOR [Concomitant]
  4. ENALAPRIL MALEATE [Concomitant]
  5. ATENOLOL [Concomitant]
  6. ASPIRIN [Suspect]
  7. AMLODIPINE [Concomitant]
  8. CARVEDILOL [Concomitant]

REACTIONS (17)
  - DIASTOLIC DYSFUNCTION [None]
  - DEPRESSION [None]
  - PAIN IN EXTREMITY [None]
  - CHEST PAIN [None]
  - TACHYPNOEA [None]
  - HEPATOMEGALY [None]
  - VENTRICULAR FIBRILLATION [None]
  - HYPERTENSION [None]
  - HIGH DENSITY LIPOPROTEIN DECREASED [None]
  - ARTERIOSCLEROSIS [None]
  - BLOOD GLUCOSE INCREASED [None]
  - MYOCARDIAL INFARCTION [None]
  - DYSPNOEA [None]
  - FIBROSIS [None]
  - TACHYCARDIA [None]
  - HEPATIC STEATOSIS [None]
  - HYPERTRIGLYCERIDAEMIA [None]
